FAERS Safety Report 6560933-7 (Version None)
Quarter: 2010Q1

REPORT INFORMATION
  Report Type: 
  Country: None (occurrence: None)
  Receive Date: 20100129
  Receipt Date: 20090930
  Transmission Date: 20100710
  Serious: No
  Sender: FDA-Public Use
  Company Number: US-ABBOTT-09P-163-0600456-00

PATIENT
  Sex: Female

DRUGS (2)
  1. HUMIRA [Suspect]
     Indication: RHEUMATOID ARTHRITIS
     Dates: start: 20080803
  2. HUMIRA [Suspect]

REACTIONS (3)
  - COLITIS ULCERATIVE [None]
  - RHEUMATOID ARTHRITIS [None]
  - URTICARIA [None]
